FAERS Safety Report 10376033 (Version 1)
Quarter: 2014Q1

REPORT INFORMATION
  Report Type: Spontaneous
  Country: US (occurrence: None)
  Receive Date: 20140306
  Receipt Date: 20140306
  Transmission Date: 20141002
  Serious: Yes (Hospitalization)
  Sender: FDA-Public Use
  Company Number: 163-21880-13041952

PATIENT
  Age: 69 Year
  Sex: Male

DRUGS (8)
  1. REVLIMID (LENALIDOMIDE) (25 MILLIGRAM, CAPSULES) [Suspect]
     Indication: PLASMA CELL MYELOMA
     Dosage: 25MG, 1 IN 1D, PO
     Route: 048
     Dates: start: 200911
  2. ALLOPURINOL (ALLOPURINOL) [Concomitant]
  3. TEMAZEPAM (TEMAZEPAM) [Concomitant]
  4. DECADRON (DEXAMETHASONE) [Concomitant]
  5. ACYCLOVIR (ACICLOVIR) [Concomitant]
  6. CYCLOPHOSPHAMIDE (CYCLOPHOSPHAMIDE) [Concomitant]
  7. COLCRYS (COLCHICINE) [Concomitant]
  8. ASPIRIN [Concomitant]

REACTIONS (2)
  - Thrombosis [None]
  - Oral pain [None]
